FAERS Safety Report 22107994 (Version 2)
Quarter: 2023Q1

REPORT INFORMATION
  Report Type: Report from Study
  Country: CA (occurrence: CA)
  Receive Date: 20230317
  Receipt Date: 20230327
  Transmission Date: 20230418
  Serious: Yes (Other)
  Sender: FDA-Public Use
  Company Number: CA-HLS-202300676

PATIENT
  Age: 29 Year
  Sex: Female

DRUGS (1)
  1. CLOZARIL [Suspect]
     Active Substance: CLOZAPINE
     Indication: Bipolar I disorder
     Dosage: 175MG
     Route: 048
     Dates: start: 20210730

REACTIONS (2)
  - Off label use [Unknown]
  - Basedow^s disease [Unknown]

NARRATIVE: CASE EVENT DATE: 20210730
